FAERS Safety Report 4413853-8 (Version None)
Quarter: 2004Q3

REPORT INFORMATION
  Report Type: 
  Country: None (occurrence: None)
  Receive Date: 20040802
  Receipt Date: 20040802
  Transmission Date: 20050211
  Serious: Yes (Other)
  Sender: FDA-Public Use
  Company Number: None

PATIENT
  Age: 43 Year
  Sex: Female
  Weight: 62.5964 kg

DRUGS (2)
  1. CELECOXIB [Suspect]
     Indication: ARTHRITIS
     Dosage: ONCE  PER DAY  ORAL
     Route: 048
     Dates: start: 20031101, end: 20031207
  2. LEVOTHROID [Concomitant]

REACTIONS (2)
  - DIZZINESS [None]
  - PHARMACEUTICAL PRODUCT COMPLAINT [None]
